FAERS Safety Report 4698776-1 (Version None)
Quarter: 2005Q2

REPORT INFORMATION
  Report Type: 
  Country: None (occurrence: None)
  Receive Date: 20050622
  Receipt Date: 20050608
  Transmission Date: 20051028
  Serious: Yes (Death)
  Sender: FDA-Public Use
  Company Number: 2005BI005695

PATIENT
  Age: 47 Year
  Sex: Male

DRUGS (12)
  1. AVONEX [Suspect]
     Indication: MULTIPLE SCLEROSIS
     Dosage: 30 UG; IM
     Route: 030
     Dates: start: 20010801
  2. CHLORAL HYDRATE [Concomitant]
  3. ZELNORM [Concomitant]
  4. AMANTADINE [Concomitant]
  5. ZONEGRAN [Concomitant]
  6. LACTULOSE [Concomitant]
  7. LOPRESSOR [Concomitant]
  8. BACLOFEN [Concomitant]
  9. DIPENTUM [Concomitant]
  10. LECITHIN [Concomitant]
  11. M.V.I. [Concomitant]
  12. MAGIC BULLET [Concomitant]

REACTIONS (1)
  - PNEUMONIA [None]
